FAERS Safety Report 24356168 (Version 1)
Quarter: 2024Q3

REPORT INFORMATION
  Report Type: Spontaneous
  Country: AT (occurrence: AT)
  Receive Date: 20240924
  Receipt Date: 20240924
  Transmission Date: 20241016
  Serious: Yes (Life-Threatening, Other)
  Sender: ALKEM
  Company Number: AT-ALKEM LABORATORIES LIMITED-AT-ALKEM-2024-21560

PATIENT
  Age: 72 Year
  Sex: Female

DRUGS (1)
  1. MORPHINE SULFATE [Suspect]
     Active Substance: MORPHINE SULFATE
     Indication: Product used for unknown indication
     Dosage: 100 MICROGRAM
     Route: 037

REACTIONS (2)
  - Nystagmus [Unknown]
  - Respiratory depression [Unknown]
